FAERS Safety Report 5908097-4 (Version None)
Quarter: 2008Q4

REPORT INFORMATION
  Report Type: 
  Country: None (occurrence: None)
  Receive Date: 20081003
  Receipt Date: 20080926
  Transmission Date: 20090506
  Serious: Yes (Other)
  Sender: FDA-Public Use
  Company Number: CA-ALLERGAN-0812160US

PATIENT
  Sex: Male

DRUGS (1)
  1. LUMIGAN [Suspect]
     Indication: DRUG USE FOR UNKNOWN INDICATION
     Dates: start: 20080926

REACTIONS (1)
  - TRIGEMINAL NEURALGIA [None]
